FAERS Safety Report 5745539-1 (Version None)
Quarter: 2008Q2

REPORT INFORMATION
  Report Type: 
  Country: None (occurrence: None)
  Receive Date: 20080521
  Receipt Date: 20080508
  Transmission Date: 20081010
  Serious: Yes (Life-Threatening)
  Sender: FDA-Public Use
  Company Number: GB-VALEANT-2008VX001077

PATIENT
  Age: 58 Year
  Sex: Female

DRUGS (4)
  1. CHLORDIAZEPOXIDE HCL [Suspect]
     Indication: ALCOHOL DETOXIFICATION
     Route: 065
     Dates: end: 20080416
  2. VALPROATE SODIUM [Concomitant]
     Route: 065
  3. CITALOPRAM HYDROBROMIDE [Concomitant]
     Route: 065
  4. THIAMINE [Concomitant]
     Route: 065

REACTIONS (1)
  - TOXIC EPIDERMAL NECROLYSIS [None]
